FAERS Safety Report 26082381 (Version 1)
Quarter: 2025Q4

REPORT INFORMATION
  Report Type: Spontaneous
  Country: US (occurrence: US)
  Receive Date: 20251124
  Receipt Date: 20251124
  Transmission Date: 20260119
  Serious: No
  Sender: BAYER HEALTHCARE LLC
  Company Number: US-BAYER-2025A153983

PATIENT
  Age: 78 Year
  Sex: Female
  Weight: 49.9 kg

DRUGS (1)
  1. MIRALAX [Suspect]
     Active Substance: POLYETHYLENE GLYCOL 3350
     Indication: Computerised tomogram intestine
     Dosage: UNK MIXED WITH GATORADE
     Route: 048

REACTIONS (4)
  - Nausea [None]
  - Vomiting [None]
  - Incorrect dose administered [None]
  - Product use in unapproved indication [None]
